FAERS Safety Report 17075950 (Version 3)
Quarter: 2020Q2

REPORT INFORMATION
  Report Type: Spontaneous
  Country: US (occurrence: US)
  Receive Date: 20191126
  Receipt Date: 20200527
  Transmission Date: 20200713
  Serious: Yes (Other)
  Sender: FDA-Public Use
  Company Number: US-GILEAD-2019-0439475

PATIENT
  Age: 41 Year
  Sex: Male
  Weight: 106.89 kg

DRUGS (18)
  1. HYDROXYZINE PAMOATE. [Concomitant]
     Active Substance: HYDROXYZINE PAMOATE
  2. TRUVADA [Suspect]
     Active Substance: EMTRICITABINE\TENOFOVIR DISOPROXIL FUMARATE
     Indication: PROPHYLAXIS AGAINST HIV INFECTION
     Dosage: 1 TABLET (200-300MG) PO QD
     Route: 048
     Dates: start: 20161101, end: 20190330
  3. CALCIUM +D3 [Concomitant]
     Active Substance: CALCIUM\CHOLECALCIFEROL
  4. VENLAFAXINE [Concomitant]
     Active Substance: VENLAFAXINE HYDROCHLORIDE
  5. BACITRACIN. [Concomitant]
     Active Substance: BACITRACIN
  6. IBUPROFEN. [Concomitant]
     Active Substance: IBUPROFEN
  7. PANTOPRAZOLE [Concomitant]
     Active Substance: PANTOPRAZOLE
  8. NICOTINE. [Concomitant]
     Active Substance: NICOTINE
  9. CLINDAMYCIN. [Concomitant]
     Active Substance: CLINDAMYCIN
  10. LABETALOL [Concomitant]
     Active Substance: LABETALOL\LABETALOL HYDROCHLORIDE
  11. TRAZODONE [Concomitant]
     Active Substance: TRAZODONE HYDROCHLORIDE
  12. ACETAMINOPHEN. [Concomitant]
     Active Substance: ACETAMINOPHEN
  13. SERTRALINE [Concomitant]
     Active Substance: SERTRALINE HYDROCHLORIDE
  14. TRETINOIN. [Concomitant]
     Active Substance: TRETINOIN
  15. GABAPENTIN. [Concomitant]
     Active Substance: GABAPENTIN
  16. BUPROPION HYDROCHLORIDE XL [Concomitant]
     Active Substance: BUPROPION HYDROCHLORIDE
  17. AMLODIPINE BESYLATE. [Concomitant]
     Active Substance: AMLODIPINE BESYLATE
  18. SODIUM CHLORIDE. [Concomitant]
     Active Substance: SODIUM CHLORIDE

REACTIONS (8)
  - Anhedonia [Unknown]
  - Pain [Unknown]
  - Foot fracture [Unknown]
  - Bone density decreased [Unknown]
  - Anxiety [Unknown]
  - Osteopenia [Unknown]
  - Emotional distress [Unknown]
  - Economic problem [Unknown]

NARRATIVE: CASE EVENT DATE: 201802
